FAERS Safety Report 5748768-6 (Version None)
Quarter: 2008Q2

REPORT INFORMATION
  Report Type: 
  Country: None (occurrence: None)
  Receive Date: 20080522
  Receipt Date: 20080505
  Transmission Date: 20081010
  Serious: Yes (Other)
  Sender: FDA-Public Use
  Company Number: 2008AL003477

PATIENT
  Sex: Female

DRUGS (1)
  1. DIGOXIN [Suspect]
     Indication: PALPITATIONS
     Dosage: 0.25MG QDAY
     Dates: start: 20080401

REACTIONS (2)
  - DEPRESSION [None]
  - SUICIDAL IDEATION [None]
